FAERS Safety Report 16445046 (Version 1)
Quarter: 2019Q2

REPORT INFORMATION
  Report Type: Spontaneous
  Country: CA (occurrence: CA)
  Receive Date: 20190618
  Receipt Date: 20190618
  Transmission Date: 20190711
  Serious: Yes (Hospitalization, Other)
  Sender: FDA-Public Use
  Company Number: CA-AUROBINDO-AUR-APL-2019-033882

PATIENT

DRUGS (8)
  1. XARELTO [Concomitant]
     Active Substance: RIVAROXABAN
     Indication: PRODUCT USED FOR UNKNOWN INDICATION
     Dosage: 20 MILLIGRAM, ONCE A DAY
     Route: 048
  2. WARFARIN [Concomitant]
     Active Substance: WARFARIN
     Indication: PRODUCT USED FOR UNKNOWN INDICATION
     Dosage: UNK
     Route: 065
  3. SANDOSTATIN [Suspect]
     Active Substance: OCTREOTIDE ACETATE
     Dosage: 20 MILLIGRAM
     Route: 030
  4. SANDOSTATIN [Suspect]
     Active Substance: OCTREOTIDE ACETATE
     Indication: NEUROENDOCRINE TUMOUR
     Dosage: 30 MILLIGRAM
     Route: 030
  5. SANDOSTATIN [Suspect]
     Active Substance: OCTREOTIDE ACETATE
     Dosage: 50 MICROGRAM, TOTAL
     Route: 058
  6. RABEPRAZOLE SODIUM. [Concomitant]
     Active Substance: RABEPRAZOLE SODIUM
     Indication: PRODUCT USED FOR UNKNOWN INDICATION
     Dosage: UNK
     Route: 065
  7. SYNTHROID [Concomitant]
     Active Substance: LEVOTHYROXINE SODIUM
     Indication: PRODUCT USED FOR UNKNOWN INDICATION
     Dosage: UNK
     Route: 065
  8. LOSARTAN. [Suspect]
     Active Substance: LOSARTAN
     Indication: PRODUCT USED FOR UNKNOWN INDICATION
     Dosage: UNK
     Route: 065

REACTIONS (26)
  - Abdominal discomfort [Recovering/Resolving]
  - Blood pressure increased [Recovering/Resolving]
  - Bone pain [Recovering/Resolving]
  - Impaired healing [Recovering/Resolving]
  - Myocardial infarction [Recovering/Resolving]
  - Abdominal pain upper [Recovering/Resolving]
  - Metastases to spine [Recovering/Resolving]
  - Neuroendocrine tumour [Recovering/Resolving]
  - Renal failure [Recovering/Resolving]
  - Speech disorder [Recovering/Resolving]
  - Urinary tract infection [Recovering/Resolving]
  - Urinary tract stoma complication [Recovering/Resolving]
  - Fall [Recovering/Resolving]
  - Malaise [Recovering/Resolving]
  - Renal impairment [Recovering/Resolving]
  - Vomiting [Recovering/Resolving]
  - Decreased appetite [Recovering/Resolving]
  - Fatigue [Recovering/Resolving]
  - Malignant neoplasm progression [Recovering/Resolving]
  - Asthenia [Recovering/Resolving]
  - Kidney infection [Recovering/Resolving]
  - Intestinal obstruction [Recovering/Resolving]
  - Weight decreased [Recovering/Resolving]
  - Metastases to bone [Recovering/Resolving]
  - Metastases to liver [Recovering/Resolving]
  - Metastases to lung [Recovering/Resolving]
